FAERS Safety Report 7668352-7 (Version None)
Quarter: 2011Q3

REPORT INFORMATION
  Report Type: 
  Country: None (occurrence: None)
  Receive Date: 20110808
  Receipt Date: 20110801
  Transmission Date: 20111222
  Serious: Yes (Other)
  Sender: FDA-Public Use
  Company Number: US-PFIZER INC-2011138684

PATIENT
  Sex: Female

DRUGS (1)
  1. LATANOPROST [Suspect]
     Dosage: IN BOTH EYES (OU) AT BEDTIME

REACTIONS (2)
  - INTRAOCULAR PRESSURE INCREASED [None]
  - PRODUCT SUBSTITUTION ISSUE [None]
